FAERS Safety Report 7511026-3 (Version None)
Quarter: 2011Q2

REPORT INFORMATION
  Report Type: 
  Country: None (occurrence: None)
  Receive Date: 20110531
  Receipt Date: 20110526
  Transmission Date: 20111010
  Serious: No
  Sender: FDA-Public Use
  Company Number: US-PFIZER INC-2011115109

PATIENT

DRUGS (2)
  1. CELEBREX [Suspect]
     Indication: OSTEOARTHRITIS
     Dosage: UNK
  2. NAPROXEN (ALEVE) [Suspect]
     Dosage: UNK

REACTIONS (4)
  - SKIN DISORDER [None]
  - DIARRHOEA [None]
  - DRUG INEFFECTIVE [None]
  - CONTUSION [None]
